FAERS Safety Report 22647126 (Version 2)
Quarter: 2023Q4

REPORT INFORMATION
  Report Type: Spontaneous
  Country: US (occurrence: US)
  Receive Date: 20230627
  Receipt Date: 20231017
  Transmission Date: 20240110
  Serious: No
  Sender: FDA-Public Use
  Company Number: US-BoehringerIngelheim-2023-BI-246529

PATIENT

DRUGS (2)
  1. OFEV [Suspect]
     Active Substance: NINTEDANIB
  2. OFEV [Suspect]
     Active Substance: NINTEDANIB
     Indication: Product used for unknown indication

REACTIONS (3)
  - Malaise [Unknown]
  - Illness [Unknown]
  - Weight decreased [Unknown]
